FAERS Safety Report 7598558-7 (Version None)
Quarter: 2011Q3

REPORT INFORMATION
  Report Type: 
  Country: None (occurrence: None)
  Receive Date: 20110708
  Receipt Date: 20110629
  Transmission Date: 20111222
  Serious: Yes (Hospitalization)
  Sender: FDA-Public Use
  Company Number: BR-ASTRAZENECA-2011SE39523

PATIENT
  Age: 84 Year
  Sex: Female

DRUGS (9)
  1. SEROQUEL [Suspect]
     Indication: PARKINSON'S DISEASE
     Route: 048
     Dates: start: 20100101
  2. SEROQUEL [Suspect]
     Route: 048
     Dates: start: 20110601
  3. SEROQUEL [Suspect]
     Route: 048
     Dates: start: 20110601
  4. SEROQUEL [Suspect]
     Route: 048
  5. SEROQUEL [Suspect]
     Route: 048
     Dates: start: 20110601
  6. SEROQUEL [Suspect]
     Route: 048
  7. SEROQUEL [Suspect]
     Indication: DEMENTIA ALZHEIMER'S TYPE
     Route: 048
     Dates: start: 20100101
  8. SEROQUEL [Suspect]
     Indication: DEMENTIA
     Route: 048
     Dates: start: 20100101
  9. SEROQUEL [Suspect]
     Route: 048

REACTIONS (6)
  - LUMBAR VERTEBRAL FRACTURE [None]
  - PAIN [None]
  - OFF LABEL USE [None]
  - HALLUCINATION [None]
  - RESTLESSNESS [None]
  - DEHYDRATION [None]
